FAERS Safety Report 4306808-5 (Version None)
Quarter: 2004Q1

REPORT INFORMATION
  Report Type: 
  Country: None (occurrence: None)
  Receive Date: 20040227
  Receipt Date: 20040216
  Transmission Date: 20041129
  Serious: Yes (Death, Disabling, Other)
  Sender: FDA-Public Use
  Company Number: KR-BRISTOL-MYERS SQUIBB COMPANY-12514253

PATIENT
  Age: 42 Year
  Sex: Male

DRUGS (3)
  1. EFAVIRENZ CAPS 200 MG [Suspect]
     Indication: HIV INFECTION
     Dosage: STOPPED 14-AUG-2003, RESTARTED 19-AUG-2003 + CONTINUED
     Route: 048
     Dates: start: 20030712
  2. LAMIVUDINE [Concomitant]
     Dosage: STOPPED 14-AUG-2003 RESTARTED 19-AUG-2003 + CONTINUED
     Dates: start: 20030712
  3. ZIDOVUDINE [Concomitant]
     Dosage: STOPPED 14-AUG-2003 RESTARTED 19-AUG-2003 + CONTINUED
     Dates: start: 20030712

REACTIONS (8)
  - ASTHENIA [None]
  - CHROMATURIA [None]
  - DIFFERENTIAL WHITE BLOOD CELL COUNT ABNORMAL [None]
  - HAEMATOCRIT DECREASED [None]
  - HAEMOGLOBIN DECREASED [None]
  - JAUNDICE [None]
  - ORGAN FAILURE [None]
  - PARALYSIS [None]
